FAERS Safety Report 8041511-X (Version None)
Quarter: 2012Q1

REPORT INFORMATION
  Report Type: 
  Country: None (occurrence: None)
  Receive Date: 20120112
  Receipt Date: 20111227
  Transmission Date: 20120608
  Serious: No
  Sender: FDA-Public Use
  Company Number: JP-ABBOTT-11P-087-0733106-00

PATIENT
  Sex: Male
  Weight: 50.8 kg

DRUGS (8)
  1. AZATHIOPRINE [Concomitant]
     Indication: PRODUCT USED FOR UNKNOWN INDICATION
     Route: 048
  2. HUMIRA [Suspect]
     Dates: start: 20101209
  3. MESALAMINE [Concomitant]
     Indication: CROHN'S DISEASE
     Route: 048
  4. ENTERAL NUTRITION [Concomitant]
     Indication: PRODUCT USED FOR UNKNOWN INDICATION
  5. BEPOTASTINE BESILATE [Concomitant]
     Indication: RHINITIS ALLERGIC
     Route: 048
  6. HUMIRA [Suspect]
     Indication: CROHN'S DISEASE
     Dates: start: 20101109, end: 20101109
  7. HUMIRA [Suspect]
     Dates: start: 20101125, end: 20101125
  8. PREDNISOLONE [Concomitant]
     Indication: PRODUCT USED FOR UNKNOWN INDICATION
     Route: 048

REACTIONS (4)
  - VARICELLA [None]
  - PAPULE [None]
  - PYREXIA [None]
  - ARTHRALGIA [None]
